FAERS Safety Report 10341164 (Version 2)
Quarter: 2015Q1

REPORT INFORMATION
  Report Type: Spontaneous
  Country: US (occurrence: US)
  Receive Date: 20140724
  Receipt Date: 20150227
  Transmission Date: 20150720
  Serious: Yes (Death, Other)
  Sender: FDA-Public Use
  Company Number: US-GILEAD-2014-0110176

PATIENT
  Age: 79 Year
  Sex: Male

DRUGS (12)
  1. LETAIRIS [Suspect]
     Active Substance: AMBRISENTAN
     Indication: PULMONARY ARTERIAL HYPERTENSION
     Dosage: 10 MG, QD
     Route: 065
     Dates: start: 20120705, end: 20140704
  2. TYVASO [Concomitant]
     Active Substance: TREPROSTINIL
  3. DIGOXIN. [Concomitant]
     Active Substance: DIGOXIN
  4. COREG [Concomitant]
     Active Substance: CARVEDILOL
  5. BENICAR [Concomitant]
     Active Substance: OLMESARTAN MEDOXOMIL
  6. ZANTAC [Concomitant]
     Active Substance: RANITIDINE HYDROCHLORIDE
  7. PROCRIT [Concomitant]
     Active Substance: ERYTHROPOIETIN
  8. NITROGLYCERIN. [Concomitant]
     Active Substance: NITROGLYCERIN
  9. LASIX [Concomitant]
     Active Substance: FUROSEMIDE
  10. ZOCOR [Concomitant]
     Active Substance: SIMVASTATIN
  11. MULTAQ [Concomitant]
     Active Substance: DRONEDARONE
  12. LAMICTAL [Concomitant]
     Active Substance: LAMOTRIGINE

REACTIONS (4)
  - Emphysema [Fatal]
  - Cardiac disorder [Fatal]
  - Pulmonary arterial hypertension [Fatal]
  - Pulmonary fibrosis [Fatal]
